FAERS Safety Report 17137607 (Version 2)
Quarter: 2019Q4

REPORT INFORMATION
  Report Type: Report from Study
  Country: US (occurrence: US)
  Receive Date: 20191210
  Receipt Date: 20191217
  Transmission Date: 20200122
  Serious: Yes (Other)
  Sender: FDA-Public Use
  Company Number: US-TAKEDA-2018TUS018022

PATIENT
  Age: 65 Year
  Sex: Female

DRUGS (3)
  1. HYDREA [Concomitant]
     Active Substance: HYDROXYUREA
     Dosage: UNK
     Route: 065
  2. PONATINIB [Suspect]
     Active Substance: PONATINIB
     Dosage: 30 MILLIGRAM, QD
     Route: 048
  3. PONATINIB [Suspect]
     Active Substance: PONATINIB
     Indication: CHRONIC MYELOID LEUKAEMIA
     Dosage: 45 MILLIGRAM, QD
     Route: 048
     Dates: start: 201802

REACTIONS (21)
  - Gallbladder disorder [Unknown]
  - Diabetic neuropathy [Unknown]
  - Malaise [Unknown]
  - Dry eye [Unknown]
  - Renal disorder [Unknown]
  - Dry skin [Unknown]
  - Blood pressure increased [Unknown]
  - Biliary colic [Unknown]
  - Rash pruritic [Not Recovered/Not Resolved]
  - Alopecia [Unknown]
  - Hyperkeratosis [Unknown]
  - Rash [Recovered/Resolved]
  - Pruritus [Unknown]
  - Chronic myeloid leukaemia [Unknown]
  - Liver disorder [Unknown]
  - Muscle spasms [Unknown]
  - Poor quality sleep [Unknown]
  - Cardiac disorder [Unknown]
  - Pain in extremity [Unknown]
  - Pain [Unknown]
  - Hypoaesthesia [Unknown]

NARRATIVE: CASE EVENT DATE: 20191202
